FAERS Safety Report 4801551-8 (Version None)
Quarter: 2005Q4

REPORT INFORMATION
  Report Type: 
  Country: None (occurrence: None)
  Receive Date: 20051011
  Receipt Date: 20051011
  Transmission Date: 20060501
  Serious: Yes (Life-Threatening, Hospitalization)
  Sender: FDA-Public Use
  Company Number: None

PATIENT
  Sex: Female
  Weight: 79.8331 kg

DRUGS (12)
  1. HERCEPTIN [Suspect]
     Indication: BREAST CANCER METASTATIC
     Dosage: 2 MG/KG WEEKLY IV
     Route: 042
     Dates: start: 20040821, end: 20050920
  2. GEMZAR [Suspect]
     Indication: BREAST CANCER METASTATIC
     Dosage: 800 MG/M2 WEEKLY IV
     Route: 042
     Dates: start: 20041130, end: 20050920
  3. AREDIA [Concomitant]
  4. PERCOCET [Concomitant]
  5. NEUPOGEN [Concomitant]
  6. RESTORIL [Concomitant]
  7. DILANDID [Concomitant]
  8. XANAX [Concomitant]
  9. PHENERGAN [Concomitant]
  10. LEXAPRO [Concomitant]
  11. PROTONIX [Concomitant]
  12. ZOFRAN [Concomitant]

REACTIONS (5)
  - DIFFUSE ALVEOLAR DAMAGE [None]
  - HEADACHE [None]
  - HYPOXIA [None]
  - PNEUMONIA [None]
  - PULMONARY FIBROSIS [None]
